FAERS Safety Report 18093620 (Version 1)
Quarter: 2020Q3

REPORT INFORMATION
  Report Type: Spontaneous
  Country: DE (occurrence: DE)
  Receive Date: 20200730
  Receipt Date: 20200730
  Transmission Date: 20201103
  Serious: Yes (Hospitalization, Other)
  Sender: FDA-Public Use
  Company Number: DE-MYLANLABS-2020M1067198

PATIENT
  Age: 51 Year
  Sex: Female

DRUGS (7)
  1. MIDAZOLAM. [Concomitant]
     Active Substance: MIDAZOLAM
     Dosage: 0.27 MILLIGRAM/KILOGRAM PER HOUR
  2. ACYCLOVIR                          /00587301/ [Concomitant]
     Active Substance: ACYCLOVIR
     Indication: ENCEPHALITIS
     Dosage: 2250 MILLIGRAM, QD (2250 MILLIGRAM PER DAY)
  3. PHENYTOIN. [Concomitant]
     Active Substance: PHENYTOIN
     Indication: STATUS EPILEPTICUS
     Dosage: 600 MILLIGRAM, QD (600 MILLIGRAM PER DAY)
  4. LACOSAMIDE. [Suspect]
     Active Substance: LACOSAMIDE
     Indication: STATUS EPILEPTICUS
     Dosage: 400 MILLIGRAM, QD (400 MILLIGRAM PER DAY)
  5. LEVETIRACETAM. [Suspect]
     Active Substance: LEVETIRACETAM
     Indication: GENERALISED TONIC-CLONIC SEIZURE
     Dosage: 3 GRAM, QD (3 GRAMS PER DAY)
  6. SUFENTANIL [Concomitant]
     Active Substance: SUFENTANIL
     Indication: GENERALISED TONIC-CLONIC SEIZURE
     Dosage: 4 MICROGRAM/KILOGRAM, HOURLY
  7. MIDAZOLAM. [Concomitant]
     Active Substance: MIDAZOLAM
     Indication: GENERALISED TONIC-CLONIC SEIZURE
     Dosage: 1.3 MILLIGRAM/KILOGRAM, HOURLY

REACTIONS (6)
  - Multiple-drug resistance [Unknown]
  - Medication error [Unknown]
  - Status epilepticus [Unknown]
  - Memory impairment [Unknown]
  - Generalised tonic-clonic seizure [Unknown]
  - Off label use [Unknown]
